FAERS Safety Report 16198613 (Version 1)
Quarter: 2019Q2

REPORT INFORMATION
  Report Type: Spontaneous
  Country: PT (occurrence: PT)
  Receive Date: 20190415
  Receipt Date: 20190415
  Transmission Date: 20190711
  Serious: Yes (Disabling, Other)
  Sender: FDA-Public Use
  Company Number: PT-FRESENIUS KABI-FK201904102

PATIENT
  Age: 55 Year
  Sex: Female

DRUGS (2)
  1. VANCOMYCIN (MANUFACTURER UNKNOWN) [Suspect]
     Active Substance: VANCOMYCIN
     Indication: ENDOPHTHALMITIS
  2. NO DRUG NAME [Concomitant]
     Indication: ENDOPHTHALMITIS
     Route: 065

REACTIONS (6)
  - Conjunctival oedema [Recovered/Resolved with Sequelae]
  - Blindness [Recovered/Resolved with Sequelae]
  - Product use issue [Recovered/Resolved with Sequelae]
  - Hypopyon [Recovered/Resolved with Sequelae]
  - Ophthalmoplegia [Recovered/Resolved with Sequelae]
  - Exophthalmos [Recovered/Resolved with Sequelae]
